FAERS Safety Report 23101362 (Version 1)
Quarter: 2023Q4

REPORT INFORMATION
  Report Type: Spontaneous
  Country: JP (occurrence: JP)
  Receive Date: 20231024
  Receipt Date: 20231024
  Transmission Date: 20240110
  Serious: Yes (Other)
  Sender: FDA-Public Use
  Company Number: JP-002147023-NVSJ2023JP015230

PATIENT
  Age: 95 Year
  Sex: Female

DRUGS (1)
  1. DIOVAN [Suspect]
     Active Substance: VALSARTAN
     Indication: Blood pressure management
     Dosage: UNK
     Route: 048

REACTIONS (2)
  - Haemorrhage [Recovered/Resolved]
  - Internal haemorrhage [Recovered/Resolved]
